FAERS Safety Report 13912271 (Version 1)
Quarter: 2017Q3

REPORT INFORMATION
  Report Type: Spontaneous
  Country: HR (occurrence: HR)
  Receive Date: 20170828
  Receipt Date: 20170828
  Transmission Date: 20171127
  Serious: Yes (Other)
  Sender: FDA-Public Use
  Company Number: HR-PFIZER INC-2017366569

PATIENT
  Age: 42 Year
  Sex: Female

DRUGS (1)
  1. ZOLOFT [Suspect]
     Active Substance: SERTRALINE HYDROCHLORIDE
     Dosage: 28 TABLETS
     Route: 048
     Dates: start: 20170523, end: 20170523

REACTIONS (4)
  - Intentional overdose [Unknown]
  - Neurological examination normal [Unknown]
  - Suicide attempt [Unknown]
  - Abdominal pain [Unknown]

NARRATIVE: CASE EVENT DATE: 20170523
